FAERS Safety Report 10578001 (Version 1)
Quarter: 2014Q4

REPORT INFORMATION
  Report Type: Spontaneous
  Country: FR (occurrence: FR)
  Receive Date: 20141112
  Receipt Date: 20141112
  Transmission Date: 20150529
  Serious: Yes (Life-Threatening)
  Sender: FDA-Public Use
  Company Number: FR-ROCHE-1487656

PATIENT
  Age: 48 Year
  Sex: Male

DRUGS (14)
  1. ENDOXAN [Concomitant]
     Active Substance: CYCLOPHOSPHAMIDE
     Indication: WALDENSTROM^S MACROGLOBULINAEMIA
     Dosage: TREATMENT DURATION = 5 DAYS?D2, D3, D4, D5, D6
     Route: 048
     Dates: start: 20121010, end: 20121014
  2. ORACILLINE [Concomitant]
     Active Substance: PENICILLIN V
  3. MABTHERA [Suspect]
     Active Substance: RITUXIMAB
     Route: 042
     Dates: start: 20121009, end: 20121022
  4. ENDOXAN [Concomitant]
     Active Substance: CYCLOPHOSPHAMIDE
     Dosage: TREATMENT DURATION = 5 DAYS?D2, D3, D4, D5, D6
     Route: 048
     Dates: start: 20120915
  5. CARDENSIEL [Concomitant]
     Active Substance: BISOPROLOL FUMARATE
  6. EUPRESSYL [Concomitant]
     Active Substance: URAPIDIL
  7. TARDYFERON (FRANCE) [Concomitant]
  8. AUGMENTIN [Concomitant]
     Active Substance: AMOXICILLIN\CLAVULANATE POTASSIUM
     Indication: WALDENSTROM^S MACROGLOBULINAEMIA
     Route: 048
     Dates: start: 20121015, end: 20121022
  9. LEVOTHYROX [Concomitant]
     Active Substance: LEVOTHYROXINE
  10. MABTHERA [Suspect]
     Active Substance: RITUXIMAB
     Indication: WALDENSTROM^S MACROGLOBULINAEMIA
     Route: 042
     Dates: start: 20120914
  11. KARDEGIC [Concomitant]
     Active Substance: ASPIRIN LYSINE
  12. SPECIAFOLDINE [Concomitant]
     Active Substance: FOLIC ACID
  13. LERCANIDIPINE [Concomitant]
     Active Substance: LERCANIDIPINE
  14. THIOCOLCHICOSIDE [Concomitant]
     Active Substance: THIOCOLCHICOSIDE

REACTIONS (1)
  - Drug reaction with eosinophilia and systemic symptoms [Recovered/Resolved]

NARRATIVE: CASE EVENT DATE: 20121017
